FAERS Safety Report 19091135 (Version 1)
Quarter: 2021Q2

REPORT INFORMATION
  Report Type: Spontaneous
  Country: US (occurrence: US)
  Receive Date: 20210405
  Receipt Date: 20210405
  Transmission Date: 20210717
  Serious: No
  Sender: FDA-Public Use
  Company Number: US-DRREDDYS-USA/USA/21/0133159

PATIENT
  Age: 17 Year
  Sex: Female
  Weight: 85.5 kg

DRUGS (2)
  1. ZENATANE [Suspect]
     Active Substance: ISOTRETINOIN
     Dosage: 30 MG TWICE A DAY
     Route: 048
     Dates: start: 202101, end: 202102
  2. ZENATANE [Suspect]
     Active Substance: ISOTRETINOIN
     Indication: ACNE
     Route: 048
     Dates: start: 20201208

REACTIONS (1)
  - Product dose omission issue [Unknown]
